FAERS Safety Report 7263950-7 (Version None)
Quarter: 2011Q1

REPORT INFORMATION
  Report Type: 
  Country: None (occurrence: None)
  Receive Date: 20110130
  Receipt Date: 20101101
  Transmission Date: 20110831
  Serious: No
  Sender: FDA-Public Use
  Company Number: US-ABBOTT-10P-163-0682625-00

PATIENT
  Age: 59 Year
  Sex: Female

DRUGS (2)
  1. A LOT OF MEDICINE [Concomitant]
     Indication: PRODUCT USED FOR UNKNOWN INDICATION
  2. HUMIRA [Suspect]
     Indication: PSORIASIS
     Dates: end: 20101011

REACTIONS (4)
  - THROAT IRRITATION [None]
  - LACERATION [None]
  - FALL [None]
  - NASOPHARYNGITIS [None]
